FAERS Safety Report 25788187 (Version 1)
Quarter: 2025Q3

REPORT INFORMATION
  Report Type: Spontaneous
  Country: CO (occurrence: CO)
  Receive Date: 20250910
  Receipt Date: 20250910
  Transmission Date: 20251021
  Serious: Yes (Other)
  Sender: SANDOZ
  Company Number: CO-002147023-NVSC2023CO243948

PATIENT
  Age: 57 Year
  Sex: Female
  Weight: 65 kg

DRUGS (5)
  1. FEMARA [Suspect]
     Active Substance: LETROZOLE
     Indication: Product used for unknown indication
     Dosage: 2.5 MG, QD
     Route: 048
  2. FULVESTRANT [Suspect]
     Active Substance: FULVESTRANT
     Indication: Product used for unknown indication
     Route: 030
  3. KISQALI [Suspect]
     Active Substance: RIBOCICLIB SUCCINATE
     Indication: Breast cancer metastatic
     Route: 048
  4. KISQALI [Suspect]
     Active Substance: RIBOCICLIB SUCCINATE
     Indication: Breast cancer
     Dosage: 600 MG, QD (DAILY)
     Route: 048
  5. KISQALI [Suspect]
     Active Substance: RIBOCICLIB SUCCINATE
     Indication: Hormone receptor positive HER2 negative breast cancer
     Dosage: 600 MG, QD
     Route: 048
     Dates: start: 20231002

REACTIONS (45)
  - Metastases to lung [Not Recovered/Not Resolved]
  - Breast cancer metastatic [Not Recovered/Not Resolved]
  - Malignant neoplasm progression [Not Recovered/Not Resolved]
  - Burning sensation [Not Recovered/Not Resolved]
  - Chest pain [Not Recovered/Not Resolved]
  - Headache [Not Recovered/Not Resolved]
  - Fingerprint loss [Unknown]
  - Incontinence [Not Recovered/Not Resolved]
  - Mouth ulceration [Unknown]
  - Pain [Unknown]
  - Gait disturbance [Unknown]
  - Inflammation [Unknown]
  - Pigmentation disorder [Not Recovered/Not Resolved]
  - Proctalgia [Not Recovered/Not Resolved]
  - Muscle spasms [Unknown]
  - Dyschezia [Unknown]
  - Onychoclasis [Unknown]
  - Gastritis [Unknown]
  - Visual impairment [Not Recovered/Not Resolved]
  - Pollakiuria [Unknown]
  - Unevaluable event [Unknown]
  - Lymphadenitis [Not Recovered/Not Resolved]
  - Stomatitis [Unknown]
  - Abdominal pain upper [Unknown]
  - Headache [Recovered/Resolved]
  - Vertigo [Unknown]
  - Alopecia [Unknown]
  - Ulcer [Unknown]
  - Rhinorrhoea [Unknown]
  - Dyspepsia [Unknown]
  - Viral infection [Unknown]
  - Malaise [Not Recovered/Not Resolved]
  - Nasal congestion [Recovered/Resolved]
  - Sneezing [Recovered/Resolved]
  - Breast pain [Recovered/Resolved]
  - Lymphadenopathy [Recovered/Resolved]
  - Discomfort [Recovered/Resolved]
  - Lymphadenopathy [Not Recovered/Not Resolved]
  - Anxiety [Unknown]
  - Influenza [Recovered/Resolved]
  - Dry skin [Unknown]
  - Pain in extremity [Unknown]
  - Constipation [Unknown]
  - Product supply issue [Unknown]
  - Product availability issue [Unknown]

NARRATIVE: CASE EVENT DATE: 20231002
